FAERS Safety Report 15251202 (Version 1)
Quarter: 2018Q3

REPORT INFORMATION
  Report Type: Spontaneous
  Country: US (occurrence: US)
  Receive Date: 20180807
  Receipt Date: 20180807
  Transmission Date: 20181010
  Serious: No
  Sender: FDA-Public Use
  Company Number: US-009507513-1807USA007900

PATIENT
  Sex: Male

DRUGS (1)
  1. PROVENTIL [Suspect]
     Active Substance: ALBUTEROL
     Indication: MUCOSAL DRYNESS
     Dosage: UNK
     Route: 055

REACTIONS (2)
  - Product use in unapproved indication [Unknown]
  - Drug administered to patient of inappropriate age [Unknown]
